FAERS Safety Report 7553780-0 (Version None)
Quarter: 2011Q2

REPORT INFORMATION
  Report Type: 
  Country: None (occurrence: None)
  Receive Date: 20110617
  Receipt Date: 20110610
  Transmission Date: 20111010
  Serious: Yes (Hospitalization)
  Sender: FDA-Public Use
  Company Number: BR-MEDIMMUNE-MEDI-0013282

PATIENT
  Sex: Female
  Weight: 2.67 kg

DRUGS (2)
  1. SYNAGIS [Suspect]
     Indication: PROPHYLAXIS
  2. SYNAGIS [Suspect]
     Indication: PNEUMONIA
     Route: 030
     Dates: start: 20110601, end: 20110601

REACTIONS (4)
  - BRONCHIOLITIS [None]
  - PNEUMONIA [None]
  - BRONCHOSPASM [None]
  - COUGH [None]
